FAERS Safety Report 10836763 (Version 1)
Quarter: 2015Q1

REPORT INFORMATION
  Report Type: Spontaneous
  Country: US (occurrence: None)
  Receive Date: 20150218
  Receipt Date: 20150218
  Transmission Date: 20150721
  Serious: No
  Sender: FDA-Public Use
  Company Number: None

PATIENT

DRUGS (1)
  1. DIASTAT [Suspect]
     Active Substance: DIAZEPAM

REACTIONS (1)
  - Drug dispensing error [None]
